FAERS Safety Report 25852850 (Version 1)
Quarter: 2025Q3

REPORT INFORMATION
  Report Type: Spontaneous
  Country: CN (occurrence: CN)
  Receive Date: 20250926
  Receipt Date: 20250926
  Transmission Date: 20251020
  Serious: Yes (Other)
  Sender: PFIZER
  Company Number: CN-PFIZER INC-PV202500114985

PATIENT
  Age: 14 Year
  Sex: Male
  Weight: 56.5 kg

DRUGS (1)
  1. METHOTREXATE SODIUM [Suspect]
     Active Substance: METHOTREXATE SODIUM
     Indication: Precursor T-lymphoblastic lymphoma/leukaemia
     Dosage: 5 G, 1X/DAY
     Route: 041
     Dates: start: 20250903, end: 20250903

REACTIONS (3)
  - Hepatic function abnormal [Recovering/Resolving]
  - Blood creatinine increased [Recovering/Resolving]
  - Drug level abnormal [Recovering/Resolving]

NARRATIVE: CASE EVENT DATE: 20250906
